FAERS Safety Report 9988068 (Version 2)
Quarter: 2014Q1

REPORT INFORMATION
  Report Type: Spontaneous
  Country: US (occurrence: US)
  Receive Date: 20140307
  Receipt Date: 20140313
  Transmission Date: 20141002
  Serious: Yes (Other)
  Sender: FDA-Public Use
  Company Number: ALCN2014US001370

PATIENT
  Age: 73 Year
  Sex: Female
  Weight: 50.79 kg

DRUGS (3)
  1. TRAVATAN Z [Suspect]
     Indication: OPEN ANGLE GLAUCOMA
     Dosage: 1 GTT, QD
     Route: 047
     Dates: end: 201211
  2. TRAVATAN Z [Suspect]
     Dosage: 1 GTT EVERY OTHER DAY
     Route: 047
     Dates: start: 201211
  3. TRAVATAN Z [Suspect]
     Dosage: 1 GTT, QD
     Route: 047

REACTIONS (4)
  - Intraocular pressure decreased [Recovered/Resolved]
  - Visual acuity reduced [Not Recovered/Not Resolved]
  - Vision blurred [Not Recovered/Not Resolved]
  - Expired drug administered [Unknown]
